FAERS Safety Report 20120126 (Version 2)
Quarter: 2021Q4

REPORT INFORMATION
  Report Type: Spontaneous
  Country: US (occurrence: US)
  Receive Date: 20211126
  Receipt Date: 20211217
  Transmission Date: 20220303
  Serious: No
  Sender: FDA-Public Use
  Company Number: US-TAKEDA-2021TUS073675

PATIENT
  Sex: Male
  Weight: 69 kg

DRUGS (4)
  1. TAKHZYRO [Suspect]
     Active Substance: LANADELUMAB-FLYO
     Indication: Hereditary angioedema
     Dosage: UNK
     Route: 058
     Dates: start: 202104
  2. TAKHZYRO [Suspect]
     Active Substance: LANADELUMAB-FLYO
     Dosage: 300 MILLIGRAM, Q4WEEKS
     Route: 058
     Dates: start: 20210415
  3. RUCONEST [Concomitant]
     Active Substance: HUMAN C1-ESTERASE INHIBITOR
     Indication: Product used for unknown indication
     Route: 065
  4. ICATIBANT [Concomitant]
     Active Substance: ICATIBANT ACETATE
     Indication: Product used for unknown indication
     Route: 065

REACTIONS (2)
  - Product temperature excursion issue [Recovered/Resolved]
  - No adverse event [Unknown]
